FAERS Safety Report 8554788-9 (Version None)
Quarter: 2012Q3

REPORT INFORMATION
  Report Type: 
  Country: None (occurrence: None)
  Receive Date: 20120731
  Receipt Date: 20120720
  Transmission Date: 20120928
  Serious: Yes (Hospitalization, Other)
  Sender: FDA-Public Use
  Company Number: US-ACTELION-A-US2012-65512

PATIENT
  Age: 60 Year
  Sex: Female

DRUGS (4)
  1. COUMADIN [Concomitant]
  2. ADCIRCA [Concomitant]
  3. TRACLEER [Suspect]
     Indication: PULMONARY ARTERIAL HYPERTENSION
     Dosage: UNK
     Route: 048
  4. VENTAVIS [Concomitant]
     Indication: PULMONARY ARTERIAL HYPERTENSION
     Dosage: UNK
     Route: 055

REACTIONS (4)
  - DYSPNOEA [None]
  - LUMBAR VERTEBRAL FRACTURE [None]
  - BACK PAIN [None]
  - ORTHOPEDIC PROCEDURE [None]
